FAERS Safety Report 23227376 (Version 1)
Quarter: 2023Q4

REPORT INFORMATION
  Report Type: Spontaneous
  Country: US (occurrence: US)
  Receive Date: 20231124
  Receipt Date: 20231124
  Transmission Date: 20240110
  Serious: No
  Sender: FDA-Public Use
  Company Number: US-TEVA-2023-US-2946344

PATIENT
  Age: 21 Year
  Sex: Male
  Weight: 90.72 kg

DRUGS (1)
  1. UZEDY [Suspect]
     Active Substance: RISPERIDONE
     Indication: Schizophrenia
     Dosage: 125/0.35 MG/ML,TAKEN MONTHLY
     Route: 065
     Dates: start: 20230925

REACTIONS (3)
  - Weight increased [Unknown]
  - Anxiety [Unknown]
  - Speech disorder [Unknown]
